FAERS Safety Report 18225234 (Version 1)
Quarter: 2020Q3

REPORT INFORMATION
  Report Type: Spontaneous
  Country: FR (occurrence: FR)
  Receive Date: 20200903
  Receipt Date: 20200903
  Transmission Date: 20201103
  Serious: Yes (Hospitalization)
  Sender: FDA-Public Use
  Company Number: FR-TEVA-2020-FR-1822207

PATIENT
  Age: 71 Year
  Sex: Female
  Weight: 70 kg

DRUGS (10)
  1. CETIRIZINE (DICHLORHYDRATE DE) [Suspect]
     Active Substance: CETIRIZINE HYDROCHLORIDE
     Indication: MACULE
     Dosage: 10 MILLIGRAM
     Route: 048
     Dates: start: 20200218, end: 20200218
  2. MOPRAL [Concomitant]
     Active Substance: OMEPRAZOLE
  3. CELECTOL [Concomitant]
     Active Substance: CELIPROLOL HYDROCHLORIDE
  4. KARDEGIC [Concomitant]
     Active Substance: ASPIRIN DL-LYSINE
  5. HYPERIUM 1 MG, COMPRIME [Concomitant]
     Active Substance: RILMENIDINE PHOSPHATE
  6. COAPROVEL [Concomitant]
     Active Substance: HYDROCHLOROTHIAZIDE\IRBESARTAN
  7. LEXOMIL [Concomitant]
     Active Substance: BROMAZEPAM
  8. CHONDROSULF [Concomitant]
     Active Substance: CHONDROITIN SULFATE (CHICKEN)
  9. TAHOR [Concomitant]
     Active Substance: ATORVASTATIN CALCIUM
  10. JANUVIA [Concomitant]
     Active Substance: SITAGLIPTIN PHOSPHATE

REACTIONS (4)
  - Dyspnoea [Recovered/Resolved]
  - Prevertebral soft tissue swelling of cervical space [Recovered/Resolved]
  - Hypoaesthesia oral [Recovered/Resolved]
  - Urticaria [Recovered/Resolved]

NARRATIVE: CASE EVENT DATE: 20200218
